FAERS Safety Report 12779454 (Version 1)
Quarter: 2016Q3

REPORT INFORMATION
  Report Type: Report from Study
  Country: IQ (occurrence: IQ)
  Receive Date: 20160926
  Receipt Date: 20160926
  Transmission Date: 20161109
  Serious: No
  Sender: FDA-Public Use
  Company Number: PHHY2012IQ055376

PATIENT
  Age: 34 Year
  Sex: Female

DRUGS (11)
  1. GLIVEC [Suspect]
     Active Substance: IMATINIB MESYLATE
     Dosage: 600 MG, QD
     Route: 048
     Dates: start: 20151211, end: 20151228
  2. METFORMINE [Concomitant]
     Active Substance: METFORMIN HYDROCHLORIDE
     Indication: PRODUCT USED FOR UNKNOWN INDICATION
     Dosage: 1 DF, BID
     Route: 048
     Dates: start: 201303
  3. GLIVEC [Suspect]
     Active Substance: IMATINIB MESYLATE
     Indication: CHRONIC MYELOID LEUKAEMIA
     Dosage: 400 MG, QD
     Route: 048
     Dates: start: 20100120, end: 201507
  4. GLIVEC [Suspect]
     Active Substance: IMATINIB MESYLATE
     Dosage: 400 MG, QD
     Route: 048
     Dates: start: 20151228, end: 201603
  5. GLUCOBAY [Concomitant]
     Active Substance: ACARBOSE
     Indication: PRODUCT USED FOR UNKNOWN INDICATION
     Dosage: 1 DF, Q12H
     Route: 048
     Dates: start: 201406
  6. GLIVEC [Suspect]
     Active Substance: IMATINIB MESYLATE
     Dosage: 600 MG, QD
     Route: 048
     Dates: start: 201507, end: 201510
  7. PARACETAMOL [Concomitant]
     Active Substance: ACETAMINOPHEN
     Indication: PRODUCT USED FOR UNKNOWN INDICATION
     Dosage: UNK (SOS)
     Route: 048
  8. GLIVEC [Suspect]
     Active Substance: IMATINIB MESYLATE
     Dosage: 400 MG, QD
     Route: 048
     Dates: start: 201510, end: 201512
  9. TASIGNA [Suspect]
     Active Substance: NILOTINIB
     Indication: PRODUCT USED FOR UNKNOWN INDICATION
     Route: 065
  10. DOSTINEX [Concomitant]
     Active Substance: CABERGOLINE
     Indication: PRODUCT USED FOR UNKNOWN INDICATION
     Dosage: 0.5 DF, PER 03 DAYS
     Route: 048
     Dates: start: 201303
  11. SUPRAX//CEFIXIME [Concomitant]
     Indication: PRODUCT USED FOR UNKNOWN INDICATION
     Dosage: 400 MG, QD
     Route: 065
     Dates: start: 20141211

REACTIONS (36)
  - Blood uric acid increased [Unknown]
  - Tumour marker increased [Not Recovered/Not Resolved]
  - Myalgia [Not Recovered/Not Resolved]
  - Flushing [Not Recovered/Not Resolved]
  - Fatigue [Recovered/Resolved]
  - Renal pain [Recovering/Resolving]
  - Influenza [Recovered/Resolved]
  - Oedema [Unknown]
  - Bone pain [Recovered/Resolved]
  - Nausea [Recovering/Resolving]
  - Syncope [Recovered/Resolved]
  - Dysgeusia [Not Recovered/Not Resolved]
  - Neck pain [Not Recovered/Not Resolved]
  - Dizziness [Unknown]
  - Menstrual disorder [Not Recovered/Not Resolved]
  - Arthralgia [Recovered/Resolved]
  - Oedema peripheral [Not Recovered/Not Resolved]
  - Headache [Recovering/Resolving]
  - Leukopenia [Recovered/Resolved]
  - Asthenia [Unknown]
  - Pyrexia [Unknown]
  - Hyperglycaemia [Recovered/Resolved]
  - Skin discolouration [Recovered/Resolved]
  - Weight increased [Not Recovered/Not Resolved]
  - Ovarian cyst [Not Recovered/Not Resolved]
  - Cough [Not Recovered/Not Resolved]
  - Dysmenorrhoea [Not Recovered/Not Resolved]
  - Influenza [Unknown]
  - Thrombocytosis [Not Recovered/Not Resolved]
  - Diarrhoea [Recovering/Resolving]
  - Blood creatinine increased [Unknown]
  - Hypertension [Recovered/Resolved]
  - Swelling [Not Recovered/Not Resolved]
  - Tonsillitis [Unknown]
  - Abdominal pain upper [Not Recovered/Not Resolved]
  - Peripheral coldness [Not Recovered/Not Resolved]

NARRATIVE: CASE EVENT DATE: 20120210
